FAERS Safety Report 7658203-9 (Version None)
Quarter: 2011Q3

REPORT INFORMATION
  Report Type: 
  Country: None (occurrence: None)
  Receive Date: 20110805
  Receipt Date: 20110726
  Transmission Date: 20111222
  Serious: Yes (Hospitalization)
  Sender: FDA-Public Use
  Company Number: US-JNJFOC-20110800707

PATIENT
  Age: 30 Year
  Sex: Male
  Weight: 72.58 kg

DRUGS (2)
  1. MOTRIN IB [Suspect]
     Route: 048
  2. MOTRIN IB [Suspect]
     Indication: TOOTHACHE
     Route: 048
     Dates: start: 20091001, end: 20101023

REACTIONS (4)
  - TENDONITIS [None]
  - WATER INTOXICATION [None]
  - PRODUCT QUALITY ISSUE [None]
  - RENAL PAIN [None]
